FAERS Safety Report 19007834 (Version 1)
Quarter: 2021Q1

REPORT INFORMATION
  Report Type: Spontaneous
  Country: US (occurrence: US)
  Receive Date: 20210315
  Receipt Date: 20210315
  Transmission Date: 20210420
  Serious: No
  Sender: FDA-Public Use
  Company Number: US-ASTRAZENECA-2021A115891

PATIENT
  Sex: Female
  Weight: 86.2 kg

DRUGS (1)
  1. BYDUREON BCISE [Suspect]
     Active Substance: EXENATIDE
     Indication: DIABETES MELLITUS
     Dosage: 2/0.85 ML, ONCE WEEKLY
     Route: 058

REACTIONS (3)
  - Injection site extravasation [Unknown]
  - Incorrect dose administered by device [Unknown]
  - Device leakage [Unknown]
